FAERS Safety Report 9369939 (Version 1)
Quarter: 2013Q2

REPORT INFORMATION
  Report Type: Spontaneous
  Country: FR (occurrence: FR)
  Receive Date: 20130626
  Receipt Date: 20130626
  Transmission Date: 20140414
  Serious: Yes (Hospitalization)
  Sender: FDA-Public Use
  Company Number: FR-TEVA-414443ISR

PATIENT
  Sex: Female

DRUGS (10)
  1. BISOPROLOL TEVA 2.5 MG [Suspect]
     Dosage: 2.5 MILLIGRAM DAILY; IN THE MORNING, DUIRNG 4-5  DAYS
     Route: 048
  2. BISOPROLOL TEVA 2.5 MG [Suspect]
     Dosage: 1.5 TABLET DAILY; 1 TABLET IN THE MORNING, 0.5 TABLET AT LUNCH
     Route: 048
  3. CITALOPRAM TEVA [Concomitant]
  4. PERINDOPRIL TEVA [Concomitant]
  5. ATORVASTATIN TEVA [Concomitant]
  6. CLOPIDOGREL TEVA [Concomitant]
  7. ZOPICLONE TEVA [Concomitant]
  8. BROMAZEPAM TEVA [Concomitant]
  9. LASILIX RETARD [Concomitant]
  10. IMETH [Concomitant]
     Indication: POLYARTHRITIS
     Route: 048

REACTIONS (4)
  - Cardiac arrest [Recovered/Resolved]
  - Heart rate abnormal [Recovered/Resolved]
  - Musculoskeletal pain [Unknown]
  - Back pain [Unknown]
